FAERS Safety Report 6919445-0 (Version None)
Quarter: 2010Q3

REPORT INFORMATION
  Report Type: 
  Country: None (occurrence: None)
  Receive Date: 20100811
  Receipt Date: 20100803
  Transmission Date: 20110219
  Serious: Yes (Other)
  Sender: FDA-Public Use
  Company Number: B0667933A

PATIENT
  Sex: Male

DRUGS (10)
  1. LAMICTAL [Suspect]
     Indication: EPILEPSY
     Dosage: 8MG PER DAY
     Route: 048
     Dates: start: 20100624, end: 20100707
  2. LAMICTAL [Suspect]
     Route: 048
     Dates: start: 20100708, end: 20100708
  3. LAMICTAL [Suspect]
     Route: 048
     Dates: start: 20100709, end: 20100712
  4. LAMICTAL [Suspect]
     Route: 048
     Dates: start: 20100713, end: 20100715
  5. LAMICTAL [Suspect]
     Dosage: 15MG PER DAY
     Route: 048
     Dates: start: 20100716, end: 20100716
  6. EXCEGRAN [Concomitant]
     Indication: EPILEPSY
     Dosage: .3G PER DAY
     Route: 048
     Dates: start: 20100225, end: 20100310
  7. EXCEGRAN [Concomitant]
     Dosage: .5G PER DAY
     Route: 048
     Dates: start: 20100311, end: 20100414
  8. EXCEGRAN [Concomitant]
     Dosage: .6G PER DAY
     Route: 048
     Dates: start: 20100415
  9. LANDSEN [Concomitant]
     Indication: EPILEPSY
     Dosage: .3G PER DAY
     Route: 048
     Dates: start: 20100716, end: 20100722
  10. LANDSEN [Concomitant]
     Dosage: .5G PER DAY
     Route: 048
     Dates: start: 20100723

REACTIONS (2)
  - EPILEPSY [None]
  - NASOPHARYNGITIS [None]
